FAERS Safety Report 23524129 (Version 1)
Quarter: 2024Q1

REPORT INFORMATION
  Report Type: Report from Study
  Country: IT (occurrence: IT)
  Receive Date: 20240214
  Receipt Date: 20240214
  Transmission Date: 20240409
  Serious: Yes (Other)
  Sender: FDA-Public Use
  Company Number: None

PATIENT
  Age: 7 Year
  Sex: Female
  Weight: 27 kg

DRUGS (6)
  1. VINCRISTINE [Suspect]
     Active Substance: VINCRISTINE
     Indication: B-cell type acute leukaemia
     Dosage: 1.50 MG/DAY ON 01, 08, 16, 23/11/2023, VINCRISTINA TEVA
     Route: 042
     Dates: start: 20231101, end: 20231123
  2. DAUNORUBICIN HYDROCHLORIDE [Suspect]
     Active Substance: DAUNORUBICIN HYDROCHLORIDE
     Indication: B-cell type acute leukaemia
     Dosage: 30 MG/DAY ON 01, 08, 16, 23/11/2023
     Route: 042
     Dates: start: 20231101, end: 20231123
  3. PANTOPRAZOLE SUN PHARMA [Concomitant]
     Indication: Prophylaxis against gastrointestinal ulcer
     Route: 042
     Dates: start: 20231025, end: 20231103
  4. PREDNISONE [Concomitant]
     Active Substance: PREDNISONE
     Indication: B-cell type acute leukaemia
     Dosage: 20 MG X 3 TIMES/DAY FROM DAY 25/10 TO DAY 21/11/2023?15 MG/DAY FROM DAY 22 TO DAY 24/11/2023?7.5 ...
     Dates: start: 20231025, end: 20231130
  5. ESOMEPRAZOLE [Concomitant]
     Active Substance: ESOMEPRAZOLE
     Indication: Prophylaxis against gastrointestinal ulcer
     Route: 048
     Dates: start: 20231104, end: 20231130
  6. ONCASPAR [Suspect]
     Active Substance: PEGASPARGASE
     Indication: B-cell type acute leukaemia
     Dosage: 2500 U/I ON 06 AND 20/11/2023
     Route: 042
     Dates: start: 20231106, end: 20231120

REACTIONS (4)
  - Neutropenia [Recovering/Resolving]
  - Pain in extremity [Recovering/Resolving]
  - Leukopenia [Recovering/Resolving]
  - Stomatitis [Recovering/Resolving]

NARRATIVE: CASE EVENT DATE: 20231106
